FAERS Safety Report 4683727-6 (Version None)
Quarter: 2005Q2

REPORT INFORMATION
  Report Type: 
  Country: None (occurrence: None)
  Receive Date: 20050607
  Receipt Date: 20031124
  Transmission Date: 20051028
  Serious: Yes (Hospitalization, Other)
  Sender: FDA-Public Use
  Company Number: PHHO2003PH15479

PATIENT
  Age: 30 Year
  Sex: Female
  Weight: 49 kg

DRUGS (1)
  1. ZELMAC [Suspect]
     Indication: IRRITABLE BOWEL SYNDROME
     Dosage: 6 MG, BID
     Route: 048
     Dates: start: 20030704, end: 20030802

REACTIONS (5)
  - ABDOMINAL PAIN LOWER [None]
  - DISEASE PROGRESSION [None]
  - EXPLORATIVE LAPAROTOMY [None]
  - OOPHORECTOMY [None]
  - OVARIAN CYST RUPTURED [None]
